FAERS Safety Report 9460841 (Version 1)
Quarter: 2013Q3

REPORT INFORMATION
  Report Type: Spontaneous
  Country: US (occurrence: US)
  Receive Date: 20130816
  Receipt Date: 20130816
  Transmission Date: 20140515
  Serious: Yes (Other)
  Sender: FDA-Public Use
  Company Number: US-ROCHE-1261639

PATIENT
  Age: 57 Year
  Sex: Male

DRUGS (3)
  1. BEVACIZUMAB [Suspect]
     Indication: CHOROIDAL NEOVASCULARISATION
     Dosage: IN 0.05 CC TO LEFT EYE (8 ALONE BEVACIZUMAB INJECTION AND 18 COMBINATION INJECTION OF BEVACIZUMAB AN
     Route: 050
  2. BEVACIZUMAB [Suspect]
     Indication: OFF LABEL USE
  3. DEXAMETHASONE [Concomitant]
     Indication: CHOROIDAL NEOVASCULARISATION
     Dosage: IN 0.05 CC IN LEFT EYE (18 COMBINATION INJECTION OF BEVACIZUMAB AND RANIBIZUMAB)
     Route: 050

REACTIONS (1)
  - Inflammation [Recovered/Resolved]
